FAERS Safety Report 19027280 (Version 3)
Quarter: 2021Q2

REPORT INFORMATION
  Report Type: Spontaneous
  Country: CA (occurrence: CA)
  Receive Date: 20210318
  Receipt Date: 20210625
  Transmission Date: 20210717
  Serious: Yes (Other)
  Sender: FDA-Public Use
  Company Number: CA-JNJFOC-20210324297

PATIENT
  Age: 50 Year
  Sex: Female
  Weight: 107 kg

DRUGS (3)
  1. REMICADE [Suspect]
     Active Substance: INFLIXIMAB
     Indication: CROHN^S DISEASE
     Route: 042
  2. HYDROCORTISONE. [Concomitant]
     Active Substance: HYDROCORTISONE
     Indication: PREMEDICATION
     Route: 065
  3. PANTOPRAZOLE [Concomitant]
     Active Substance: PANTOPRAZOLE
     Indication: GASTROOESOPHAGEAL REFLUX DISEASE
     Route: 065

REACTIONS (14)
  - Blood pressure increased [Recovered/Resolved]
  - Vertigo [Recovered/Resolved]
  - Influenza [Recovered/Resolved]
  - Blood pressure fluctuation [Unknown]
  - Cardiac disorder [Recovered/Resolved]
  - Uveitis [Recovered/Resolved]
  - Condition aggravated [Recovered/Resolved]
  - Systemic viral infection [Recovered/Resolved]
  - Off label use [Recovered/Resolved]
  - Arthralgia [Recovered/Resolved]
  - Therapeutic response shortened [Unknown]
  - Dizziness [Recovered/Resolved]
  - Eye infection [Recovered/Resolved]
  - Conjunctivitis [Recovered/Resolved]
